FAERS Safety Report 21381175 (Version 1)
Quarter: 2022Q3

REPORT INFORMATION
  Report Type: Spontaneous
  Country: US (occurrence: US)
  Receive Date: 20220927
  Receipt Date: 20220927
  Transmission Date: 20221027
  Serious: No
  Sender: FDA-Public Use
  Company Number: US-Sprout Pharmaceuticals, Inc.-2022SP000270

PATIENT
  Age: 33 Year
  Sex: Female

DRUGS (2)
  1. ADDYI [Suspect]
     Active Substance: FLIBANSERIN
     Indication: Product used for unknown indication
     Route: 048
     Dates: start: 20220917
  2. ADDERALL [Concomitant]
     Active Substance: AMPHETAMINE ASPARTATE\AMPHETAMINE SULFATE\DEXTROAMPHETAMINE SACCHARATE\DEXTROAMPHETAMINE SULFATE
     Indication: Product used for unknown indication
     Route: 065

REACTIONS (14)
  - Confusional state [Unknown]
  - Presyncope [Unknown]
  - Paraesthesia [Unknown]
  - Nightmare [Unknown]
  - Headache [Unknown]
  - Vomiting [Unknown]
  - Tachycardia [Unknown]
  - Abdominal discomfort [Unknown]
  - Feeling jittery [Unknown]
  - Vision blurred [Unknown]
  - Depressed mood [Unknown]
  - Irritability [Unknown]
  - Nausea [Unknown]
  - Middle insomnia [Unknown]

NARRATIVE: CASE EVENT DATE: 20220917
